FAERS Safety Report 12672199 (Version 1)
Quarter: 2016Q3

REPORT INFORMATION
  Report Type: Spontaneous
  Country: AR (occurrence: AR)
  Receive Date: 20160822
  Receipt Date: 20160822
  Transmission Date: 20161109
  Serious: Yes (Other)
  Sender: FDA-Public Use
  Company Number: AR-PFIZER INC-2016395512

PATIENT
  Age: 57 Year
  Sex: Female

DRUGS (1)
  1. XELJANZ [Suspect]
     Active Substance: TOFACITINIB CITRATE
     Indication: RHEUMATOID ARTHRITIS
     Dosage: 5 MG, WEEKLY
     Dates: start: 20160712

REACTIONS (3)
  - Blood pressure increased [Recovered/Resolved]
  - Cerebrovascular accident [Recovered/Resolved]
  - Drug intolerance [Recovered/Resolved]

NARRATIVE: CASE EVENT DATE: 201607
